FAERS Safety Report 5058050-0 (Version None)
Quarter: 2006Q3

REPORT INFORMATION
  Report Type: 
  Country: None (occurrence: None)
  Receive Date: 20060721
  Receipt Date: 20060525
  Transmission Date: 20061208
  Serious: No
  Sender: FDA-Public Use
  Company Number: US-GLAXOSMITHKLINE-A0607664A

PATIENT
  Sex: Male

DRUGS (3)
  1. AVANDIA [Suspect]
     Dosage: 2MG IN THE MORNING
     Route: 048
     Dates: start: 20060401
  2. GLUCOPHAGE [Concomitant]
     Dosage: 500MG TWICE PER DAY
  3. GLUCOTROL [Concomitant]
     Dosage: 10MG TWICE PER DAY

REACTIONS (2)
  - BLOOD GLUCOSE INCREASED [None]
  - DRUG INEFFECTIVE [None]
